FAERS Safety Report 8437003 (Version 2)
Quarter: 2012Q4

REPORT INFORMATION
  Report Type: 
  Country: RU (occurrence: RU)
  Receive Date: 20120302
  Receipt Date: 20120904
  Transmission Date: 20130627
  Serious: Yes (Other)
  Sender: FDA-Public Use
  Company Number: RU-JNJFOC-20120212005

PATIENT
  Age: 23 Year
  Sex: Male

DRUGS (5)
  1. PALIPERIDONE [Suspect]
     Indication: SCHIZOPHRENIA
     Route: 030
     Dates: start: 20120127, end: 20120127
  2. PALIPERIDONE [Suspect]
     Indication: SCHIZOPHRENIA
     Route: 030
     Dates: start: 20120120, end: 20120120
  3. ALPRAZOLAM [Concomitant]
     Route: 065
     Dates: start: 2012
  4. CYCLODOL [Concomitant]
     Route: 065
     Dates: start: 2012
  5. AMITRIPTYLINE [Concomitant]
     Route: 065
     Dates: start: 2012

REACTIONS (1)
  - Suicide attempt [Recovered/Resolved]
